FAERS Safety Report 17994513 (Version 1)
Quarter: 2020Q3

REPORT INFORMATION
  Report Type: Spontaneous
  Country: CN (occurrence: CN)
  Receive Date: 20200708
  Receipt Date: 20200708
  Transmission Date: 20201103
  Serious: Yes (Other)
  Sender: FDA-Public Use
  Company Number: CN-PFIZER INC-2020247037

PATIENT
  Age: 56 Year
  Sex: Female
  Weight: 49.9 kg

DRUGS (1)
  1. SIROLIMUS. [Suspect]
     Active Substance: SIROLIMUS
     Indication: PROPHYLAXIS AGAINST TRANSPLANT REJECTION
     Dosage: 1 MG, 1X/DAY
     Route: 048
     Dates: start: 20200615, end: 20200618

REACTIONS (5)
  - Chest pain [Recovered/Resolved]
  - Blood urea increased [Recovered/Resolved]
  - Headache [Recovered/Resolved]
  - Blood creatinine increased [Recovering/Resolving]
  - Urine output decreased [Recovered/Resolved]

NARRATIVE: CASE EVENT DATE: 20200615
